FAERS Safety Report 13038005 (Version 1)
Quarter: 2016Q4

REPORT INFORMATION
  Report Type: Report from Study
  Country: US (occurrence: US)
  Receive Date: 20161218
  Receipt Date: 20161218
  Transmission Date: 20170207
  Serious: Yes (Hospitalization)
  Sender: FDA-Public Use
  Company Number: US-MALLINCKRODT-T201606347

PATIENT
  Age: 60 Year
  Sex: Female

DRUGS (1)
  1. REPOSITORY CORTICOTROPIN INJECTION [Suspect]
     Active Substance: CORTICOTROPIN
     Indication: SARCOIDOSIS
     Dosage: UNK
     Route: 065
     Dates: end: 201610

REACTIONS (3)
  - Sarcoidosis [Not Recovered/Not Resolved]
  - Cough [Not Recovered/Not Resolved]
  - Drug dose omission [Unknown]

NARRATIVE: CASE EVENT DATE: 201610
